FAERS Safety Report 16810828 (Version 2)
Quarter: 2020Q2

REPORT INFORMATION
  Report Type: Spontaneous
  Country: US (occurrence: US)
  Receive Date: 20190916
  Receipt Date: 20200408
  Transmission Date: 20200713
  Serious: Yes (Death, Hospitalization, Other)
  Sender: FDA-Public Use
  Company Number: US-009507513-1909USA003463

PATIENT
  Sex: Male
  Weight: 83.9 kg

DRUGS (3)
  1. BYDUREON [Suspect]
     Active Substance: EXENATIDE
     Indication: TYPE 2 DIABETES MELLITUS
     Dosage: 2 MILLIGRAM, EACH WEEK
     Route: 058
     Dates: start: 201702, end: 201704
  2. JANUMET [Suspect]
     Active Substance: METFORMIN HYDROCHLORIDE\SITAGLIPTIN PHOSPHATE
     Indication: TYPE 2 DIABETES MELLITUS
     Dosage: 50/1000MG, QD
     Route: 048
     Dates: start: 201206, end: 201705
  3. VICTOZA [Suspect]
     Active Substance: LIRAGLUTIDE
     Indication: TYPE 2 DIABETES MELLITUS
     Dosage: (STRENGTH: 18MG/3ML) 1.2 MILLIGRAM, ONCE DAILY
     Route: 058
     Dates: start: 201209, end: 201302

REACTIONS (11)
  - Gallbladder disorder [Unknown]
  - Atelectasis [Unknown]
  - Pancreatic carcinoma [Fatal]
  - Cerebrovascular accident [Unknown]
  - Nephrolithiasis [Unknown]
  - Coronary artery disease [Unknown]
  - Gallbladder enlargement [Unknown]
  - Intestinal cyst [Recovered/Resolved]
  - Pulmonary oedema [Unknown]
  - Pneumonia [Unknown]
  - Transient ischaemic attack [Unknown]

NARRATIVE: CASE EVENT DATE: 2013
